FAERS Safety Report 11586305 (Version 1)
Quarter: 2015Q3

REPORT INFORMATION
  Report Type: Spontaneous
  Country: US (occurrence: US)
  Receive Date: 20150916
  Receipt Date: 20150916
  Transmission Date: 20151125
  Serious: No
  Sender: FDA-Public Use
  Company Number: US-ELI_LILLY_AND_COMPANY-US200803003056

PATIENT
  Age: 64 Year
  Sex: Female

DRUGS (14)
  1. CLARINEX [Concomitant]
     Active Substance: DESLORATADINE
  2. VITAMIN D [Concomitant]
     Active Substance: CHOLECALCIFEROL
  3. LEXAPRO [Concomitant]
     Active Substance: ESCITALOPRAM OXALATE
  4. ADVAIR HFA [Concomitant]
     Active Substance: FLUTICASONE PROPIONATE\SALMETEROL XINAFOATE
  5. LEVAQUIN [Concomitant]
     Active Substance: LEVOFLOXACIN
  6. DIGOXIN. [Concomitant]
     Active Substance: DIGOXIN
  7. VAGITROL [Concomitant]
  8. FORTEO [Suspect]
     Active Substance: TERIPARATIDE
     Dosage: 20 UG, UNK
     Dates: start: 20070814
  9. LUNESTA [Concomitant]
     Active Substance: ESZOPICLONE
  10. FLOVENT [Concomitant]
     Active Substance: FLUTICASONE PROPIONATE
  11. FLONASE [Concomitant]
     Active Substance: FLUTICASONE PROPIONATE
  12. PROTONIX [Concomitant]
     Active Substance: PANTOPRAZOLE SODIUM
  13. GUAIFENESIN. [Concomitant]
     Active Substance: GUAIFENESIN
  14. ACTIGALL [Concomitant]
     Active Substance: URSODIOL

REACTIONS (1)
  - Tooth loss [Unknown]
